APPROVED DRUG PRODUCT: PRAZOSIN HYDROCHLORIDE
Active Ingredient: PRAZOSIN HYDROCHLORIDE
Strength: EQ 1MG BASE
Dosage Form/Route: CAPSULE;ORAL
Application: A072575 | Product #003 | TE Code: AB
Applicant: MYLAN PHARMACEUTICALS INC
Approved: May 16, 1989 | RLD: No | RS: No | Type: RX